FAERS Safety Report 5520280-9 (Version None)
Quarter: 2007Q4

REPORT INFORMATION
  Report Type: 
  Country: None (occurrence: None)
  Receive Date: 20071118
  Receipt Date: 20071107
  Transmission Date: 20080405
  Serious: Yes (Other)
  Sender: FDA-Public Use
  Company Number: NZ-ELI_LILLY_AND_COMPANY-NZ200711001783

PATIENT
  Age: 14 Year
  Sex: Male
  Weight: 45 kg

DRUGS (5)
  1. STRATTERA [Suspect]
     Indication: POST-TRAUMATIC STRESS DISORDER
     Dosage: 18 MG, UNKNOWN
     Route: 065
     Dates: start: 20070201
  2. STRATTERA [Suspect]
     Dosage: 25 MG, UNKNOWN
     Route: 065
  3. STRATTERA [Suspect]
     Dosage: 40 MG, UNKNOWN
     Route: 065
  4. STRATTERA [Suspect]
     Dosage: 18 MG, UNKNOWN
     Route: 065
  5. STRATTERA [Suspect]
     Dosage: 25 MG, UNKNOWN
     Route: 065

REACTIONS (3)
  - DYSPHORIA [None]
  - IRRITABILITY [None]
  - SUICIDAL IDEATION [None]
